FAERS Safety Report 6414114-8 (Version None)
Quarter: 2009Q4

REPORT INFORMATION
  Report Type: 
  Country: None (occurrence: None)
  Receive Date: 20091026
  Receipt Date: 20091012
  Transmission Date: 20100525
  Serious: Yes (Other)
  Sender: FDA-Public Use
  Company Number: US-MERCK-0910USA02751

PATIENT
  Age: 39 Year
  Sex: Female

DRUGS (7)
  1. LISINOPRIL [Suspect]
     Route: 048
  2. AMANTADINE HYDROCHLORIDE [Suspect]
     Indication: TARDIVE DYSKINESIA
     Route: 048
  3. DEPAKOTE [Suspect]
     Route: 065
  4. HALDOL [Suspect]
     Route: 065
  5. SEROQUEL [Suspect]
     Route: 065
  6. LEVOTIROXINA (LEVOTHYROXINE SODIUM) [Suspect]
     Route: 065
  7. WELLBUTRIN [Suspect]
     Route: 065

REACTIONS (2)
  - CORNEAL GRAFT REJECTION [None]
  - CORNEAL OEDEMA [None]
